FAERS Safety Report 9668445 (Version 2)
Quarter: 2013Q4

REPORT INFORMATION
  Report Type: Spontaneous
  Country: VE (occurrence: VE)
  Receive Date: 20131105
  Receipt Date: 20131206
  Transmission Date: 20140711
  Serious: Yes (Death, Other)
  Sender: FDA-Public Use
  Company Number: VE-AMGEN-VENSP2013077217

PATIENT
  Age: 74 Year
  Sex: Male

DRUGS (1)
  1. ENBREL [Suspect]
     Indication: PSORIASIS
     Dosage: UNK, ALTERNATE DAY
     Route: 058
     Dates: start: 2012, end: 2012

REACTIONS (3)
  - Myocardial infarction [Fatal]
  - Inguinal hernia [Recovered/Resolved]
  - Arthropathy [Unknown]
